FAERS Safety Report 8325076-0 (Version None)
Quarter: 2012Q2

REPORT INFORMATION
  Report Type: 
  Country: None (occurrence: None)
  Receive Date: 20120501
  Receipt Date: 20120424
  Transmission Date: 20120825
  Serious: Yes (Hospitalization, Other)
  Sender: FDA-Public Use
  Company Number: US-ABBOTT-10P-163-0624589-00

PATIENT
  Sex: Male
  Weight: 41.314 kg

DRUGS (11)
  1. CHEMOTHERAPY [Concomitant]
     Indication: PRODUCT USED FOR UNKNOWN INDICATION
  2. LUXIQ [Concomitant]
     Indication: PSORIASIS
     Dosage: FOAM FOR SCALP
  3. HUMIRA [Suspect]
  4. TOPICAL STEROIDS [Concomitant]
     Indication: PRODUCT USED FOR UNKNOWN INDICATION
  5. HUMIRA [Suspect]
     Indication: PSORIASIS
     Route: 030
     Dates: start: 20080213
  6. UNKNOWN TOPICALS [Concomitant]
     Indication: PRODUCT USED FOR UNKNOWN INDICATION
     Route: 061
  7. INFLUENZA VACCINE [Concomitant]
     Indication: PRODUCT USED FOR UNKNOWN INDICATION
     Dates: start: 20080915, end: 20080915
  8. METHOTREXATE [Concomitant]
     Indication: PRODUCT USED FOR UNKNOWN INDICATION
     Route: 048
  9. HYDROCORTISONE [Concomitant]
     Indication: PRODUCT USED FOR UNKNOWN INDICATION
  10. DERMA-SMOOTHE/FS [Concomitant]
     Indication: PRODUCT USED FOR UNKNOWN INDICATION
  11. PROTOPIC [Concomitant]
     Indication: PRODUCT USED FOR UNKNOWN INDICATION

REACTIONS (4)
  - HEADACHE [None]
  - T-CELL TYPE ACUTE LEUKAEMIA [None]
  - ARTHRALGIA [None]
  - MALAISE [None]
